FAERS Safety Report 7964850-7 (Version None)
Quarter: 2011Q4

REPORT INFORMATION
  Report Type: 
  Country: None (occurrence: None)
  Receive Date: 20111208
  Receipt Date: 20111201
  Transmission Date: 20120403
  Serious: Yes (Other)
  Sender: FDA-Public Use
  Company Number: PHHY2011US12623

PATIENT
  Sex: Male

DRUGS (22)
  1. SIMVASTATIN [Concomitant]
     Dosage: UNK UKN, UNK
  2. SPRYCEL [Suspect]
     Dosage: 20 MG, DAILY
  3. BUPROPION HYDROCHLORIDE [Concomitant]
     Dosage: UNK UKN, UNK
  4. ZETIA [Concomitant]
     Dosage: UNK UKN, UNK
  5. TRICOR [Concomitant]
     Dosage: UNK UKN, UNK
  6. THERAGRAN-M [Concomitant]
     Dosage: UNK UKN, UNK
  7. METOPROLOL TARTRATE [Concomitant]
     Dosage: UNK UKN, UNK
  8. TASIGNA [Suspect]
     Dosage: UNK UKN, UNK
  9. ASPIRIN 89 [Concomitant]
     Dosage: UNK UKN, UNK
  10. KENALOG [Concomitant]
     Dosage: UNK UKN, UNK
  11. LOVAZA [Concomitant]
     Dosage: UNK UKN, UNK
  12. SPRYCEL [Suspect]
     Dosage: 100 MG, DAILY
  13. SPRYCEL [Suspect]
     Dosage: 40 MG, DAILY
  14. CLONAZEPAM [Concomitant]
     Dosage: UNK UKN, UNK
  15. LISINOPRIL [Concomitant]
     Dosage: UNK UKN, UNK
  16. GLEEVEC [Suspect]
     Dosage: UNK UKN, UNK
  17. HYDRALAZINE (CURRENTLY ON) [Concomitant]
     Dosage: UNK UKN, UNK
  18. ASPIRIN [Concomitant]
     Dosage: UNK UKN, UNK
  19. CRESTOR [Concomitant]
     Dosage: UNK UKN, UNK
  20. ANDROGEL [Concomitant]
     Dosage: UNK UKN, UNK
  21. LASIX [Concomitant]
     Dosage: UNK UKN, UNK
  22. OXYCODONE HCL [Concomitant]
     Indication: PAIN
     Dosage: UNK UKN, UNK

REACTIONS (2)
  - PANCREATITIS [None]
  - LIPIDS INCREASED [None]
